FAERS Safety Report 7181432-8 (Version None)
Quarter: 2010Q4

REPORT INFORMATION
  Report Type: 
  Country: None (occurrence: None)
  Receive Date: 20101221
  Receipt Date: 20100423
  Transmission Date: 20110411
  Serious: Yes (Other)
  Sender: FDA-Public Use
  Company Number: US-AMGEN-TCS405771

PATIENT

DRUGS (2)
  1. ENBREL [Suspect]
     Indication: PSORIATIC ARTHROPATHY
     Dosage: 50 MG, QWK
     Route: 058
     Dates: start: 20040401
  2. ENBREL [Suspect]
     Indication: PSORIASIS

REACTIONS (3)
  - BLOOD GLUCOSE ABNORMAL [None]
  - MONOCYTE COUNT ABNORMAL [None]
  - THROMBOCYTOPENIA [None]
